FAERS Safety Report 22265955 (Version 1)
Quarter: 2023Q2

REPORT INFORMATION
  Report Type: Spontaneous
  Country: ES (occurrence: ES)
  Receive Date: 20230428
  Receipt Date: 20230428
  Transmission Date: 20230722
  Serious: Yes (Disabling, Other)
  Sender: FDA-Public Use
  Company Number: ES-BAYER-2023A058222

PATIENT
  Age: 35 Year
  Sex: Female

DRUGS (1)
  1. CIPROFLOXACIN [Suspect]
     Active Substance: CIPROFLOXACIN
     Indication: Urinary tract infection
     Dosage: UNK
     Dates: start: 201606

REACTIONS (17)
  - Autonomic neuropathy [None]
  - Seizure [None]
  - Arrhythmia [None]
  - Fatigue [None]
  - Small fibre neuropathy [None]
  - Arthralgia [None]
  - Back pain [None]
  - Tendon pain [None]
  - Tendon injury [None]
  - Muscular weakness [None]
  - Muscle spasms [None]
  - Cognitive disorder [None]
  - Sleep paralysis [None]
  - Anxiety [None]
  - Allergy to chemicals [None]
  - Temporomandibular joint syndrome [None]
  - Visual impairment [None]
